FAERS Safety Report 7689192-9 (Version None)
Quarter: 2011Q3

REPORT INFORMATION
  Report Type: 
  Country: None (occurrence: None)
  Receive Date: 20110817
  Receipt Date: 20110809
  Transmission Date: 20111222
  Serious: Yes (Hospitalization, Other)
  Sender: FDA-Public Use
  Company Number: US-AMGEN-USASP2011035440

PATIENT
  Age: 19 Year
  Sex: Female
  Weight: 71.927 kg

DRUGS (16)
  1. EPOGEN [Suspect]
     Dosage: 40000 IU, UNK
     Route: 058
     Dates: start: 20110201, end: 20110428
  2. TOPAMAX [Concomitant]
     Dosage: UNK
     Dates: start: 20110107
  3. NIFEDIPINE [Concomitant]
     Dosage: UNK
     Dates: start: 20110628
  4. EPOGEN [Suspect]
     Indication: ANAEMIA
     Dosage: 20000 IU, QMO
     Route: 058
     Dates: start: 20101129, end: 20101214
  5. EPOGEN [Suspect]
     Indication: RENAL FAILURE CHRONIC
     Dosage: 20000 IU, Q2WK
     Route: 058
     Dates: start: 20101214, end: 20110104
  6. ERGOCALCIFEROL [Concomitant]
     Dosage: UNK
     Dates: start: 20101117
  7. POTASSIUM CHLORIDE [Concomitant]
     Dosage: UNK
     Dates: start: 20110628
  8. EPOGEN [Suspect]
     Dosage: 20000 IU, Q2WK
     Route: 058
     Dates: start: 20110428
  9. FOSRENOL [Concomitant]
     Dosage: UNK
     Dates: start: 20110802
  10. RENAGEL [Concomitant]
  11. WHOLE BLOOD [Concomitant]
     Dosage: UNK
  12. CARVEDILOL [Concomitant]
     Dosage: UNK
     Dates: start: 20110315
  13. AMLODIPINE [Concomitant]
     Dosage: UNK
     Dates: start: 20110104, end: 20110517
  14. GENTAMICIN [Concomitant]
     Dosage: UNK
     Route: 061
     Dates: start: 20101117
  15. LASIX [Concomitant]
     Dosage: UNK
     Dates: start: 20101124
  16. ALBUTEROL SULFATE AUTOHALER [Concomitant]
     Dosage: UNK
     Dates: start: 20110201

REACTIONS (12)
  - NAUSEA [None]
  - POSTERIOR REVERSIBLE ENCEPHALOPATHY SYNDROME [None]
  - DYSPNOEA [None]
  - COUGH [None]
  - CONVULSION [None]
  - ANAEMIA [None]
  - DRUG INEFFECTIVE [None]
  - FLUID OVERLOAD [None]
  - HAEMATEMESIS [None]
  - BLOOD ERYTHROPOIETIN ABNORMAL [None]
  - PNEUMONIA [None]
  - VOMITING [None]
